FAERS Safety Report 8152258-3 (Version None)
Quarter: 2012Q1

REPORT INFORMATION
  Report Type: 
  Country: None (occurrence: None)
  Receive Date: 20120215
  Receipt Date: 20120215
  Transmission Date: 20120608
  Serious: Yes (Hospitalization)
  Sender: FDA-Public Use
  Company Number: None

PATIENT
  Sex: Male
  Weight: 86.18 kg

DRUGS (10)
  1. DYAZIDE [Concomitant]
  2. CASODEX [Suspect]
     Dosage: 5850 MG
  3. XALATAN [Concomitant]
  4. ASPIRIN [Concomitant]
  5. CALCIUM PLUS D3 [Concomitant]
  6. PLAVIX [Concomitant]
  7. MULTI-VITAMINS [Concomitant]
  8. LISINOPRIL [Concomitant]
  9. ZOCOR [Concomitant]
  10. FLUTAMIDE [Suspect]
     Dosage: 86.4 MG

REACTIONS (2)
  - MUSCULAR WEAKNESS [None]
  - DYSPNOEA [None]
